FAERS Safety Report 25675874 (Version 3)
Quarter: 2025Q3

REPORT INFORMATION
  Report Type: Spontaneous
  Country: US (occurrence: US)
  Receive Date: 20250813
  Receipt Date: 20250822
  Transmission Date: 20251021
  Serious: Yes (Hospitalization, Other)
  Sender: MERCK SHARP & DOHME LLC
  Company Number: US-009507513-2316696

PATIENT
  Age: 63 Year
  Sex: Female

DRUGS (14)
  1. KEYTRUDA [Suspect]
     Active Substance: PEMBROLIZUMAB
     Indication: Breast cancer
     Route: 042
     Dates: start: 202301, end: 202407
  2. METOPROLOL [Concomitant]
     Active Substance: METOPROLOL
  3. AMILORIDE [Concomitant]
     Active Substance: AMILORIDE
  4. ASPIRIN [Concomitant]
     Active Substance: ASPIRIN
  5. FUROSEMIDE [Concomitant]
     Active Substance: FUROSEMIDE
  6. POTASSIUM [Concomitant]
     Active Substance: POTASSIUM
  7. LEVOTHYROXINE [Concomitant]
     Active Substance: LEVOTHYROXINE
  8. ALLOPURINOL [Concomitant]
     Active Substance: ALLOPURINOL
  9. GABAPENTIN [Concomitant]
     Active Substance: GABAPENTIN
  10. DULOXETINE [Concomitant]
     Active Substance: DULOXETINE
  11. CYMBALTA [Concomitant]
     Active Substance: DULOXETINE HYDROCHLORIDE
  12. sena laxative [Concomitant]
  13. PEPCID [Concomitant]
     Active Substance: FAMOTIDINE
  14. ZOFRAN [Concomitant]
     Active Substance: ONDANSETRON HYDROCHLORIDE

REACTIONS (4)
  - Hepatic failure [Recovered/Resolved]
  - Fatigue [Recovered/Resolved]
  - Infrequent bowel movements [Recovered/Resolved]
  - Neuropathy peripheral [Recovered/Resolved]
